FAERS Safety Report 7662703-5 (Version None)
Quarter: 2011Q3

REPORT INFORMATION
  Report Type: 
  Country: None (occurrence: None)
  Receive Date: 20110805
  Receipt Date: 20100824
  Transmission Date: 20111222
  Serious: No
  Sender: FDA-Public Use
  Company Number: US-ABBOTT-10P-163-0666099-00

PATIENT
  Age: 50 Year
  Sex: Male
  Weight: 90.8 kg

DRUGS (3)
  1. NIASPAN [Suspect]
     Indication: HIGH DENSITY LIPOPROTEIN DECREASED
  2. ASPIRIN [Concomitant]
     Indication: PRODUCT USED FOR UNKNOWN INDICATION
     Dosage: AT LUNCHTIME
  3. NIASPAN [Suspect]
     Indication: BLOOD TRIGLYCERIDES INCREASED
     Dosage: AT BEDTIME
     Dates: start: 20100601

REACTIONS (4)
  - FLUSHING [None]
  - BLOOD TRIGLYCERIDES INCREASED [None]
  - ERYTHEMA [None]
  - SKIN BURNING SENSATION [None]
